FAERS Safety Report 9027333 (Version 2)
Quarter: 2013Q1

REPORT INFORMATION
  Report Type: Spontaneous
  Country: PT (occurrence: PT)
  Receive Date: 20130123
  Receipt Date: 20130214
  Transmission Date: 20140127
  Serious: Yes (Life-Threatening, Hospitalization)
  Sender: FDA-Public Use
  Company Number: PT-B.I. PHARMACEUTICALS,INC./RIDGEFIELD-2013-BI-01431PO

PATIENT
  Age: 74 Year
  Sex: Male
  Weight: 90 kg

DRUGS (4)
  1. PRADAXA [Suspect]
     Indication: ISCHAEMIC STROKE
     Dosage: 220 MG
  2. PRADAXA [Suspect]
     Indication: ATRIAL FIBRILLATION
  3. ACTILYSE [Suspect]
     Indication: ISCHAEMIC STROKE
     Dosage: 81 MG
     Dates: start: 20130109, end: 20130109
  4. SINVASTATINA [Concomitant]
     Dosage: 20 MG

REACTIONS (2)
  - Ischaemic stroke [Unknown]
  - Haemorrhagic transformation stroke [Not Recovered/Not Resolved]
